FAERS Safety Report 12346279 (Version 1)
Quarter: 2016Q2

REPORT INFORMATION
  Report Type: Spontaneous
  Country: US (occurrence: None)
  Receive Date: 20160506
  Receipt Date: 20160506
  Transmission Date: 20160815
  Serious: No
  Sender: FDA-Public Use
  Company Number: None

PATIENT
  Age: 22 Year
  Sex: Female
  Weight: 65.41 kg

DRUGS (1)
  1. IMITREX [Suspect]
     Active Substance: SUMATRIPTAN SUCCINATE
     Indication: MIGRAINE
     Dosage: ONE TAB AT ONSET OF HEADACHE ORAL
     Route: 048
     Dates: start: 20141114, end: 20150212

REACTIONS (2)
  - Crying [None]
  - Hallucination [None]

NARRATIVE: CASE EVENT DATE: 20150212
